FAERS Safety Report 9239550 (Version 1)
Quarter: 2013Q2

REPORT INFORMATION
  Report Type: Spontaneous
  Country: SI (occurrence: SI)
  Receive Date: 20130418
  Receipt Date: 20130418
  Transmission Date: 20140414
  Serious: Yes (Life-Threatening, Other)
  Sender: FDA-Public Use
  Company Number: SI-BAXTER-2013BAX013499

PATIENT
  Age: 0 Year
  Sex: Male
  Weight: 9.6 kg

DRUGS (5)
  1. KIOVIG 100 MG/ML SOLUTION FOR INFUSION INTRAVENOUS USE VIAL (GLASS) 30 [Suspect]
     Indication: KAWASAKI^S DISEASE
     Route: 042
     Dates: start: 20130402, end: 20130402
  2. PARACETAMOL [Concomitant]
     Indication: PYREXIA
     Route: 048
     Dates: start: 20130326, end: 20130402
  3. METAMIZOL SODIUM [Concomitant]
     Indication: PYREXIA
     Route: 042
     Dates: start: 20130328, end: 20130331
  4. ASPIRIN [Concomitant]
     Indication: KAWASAKI^S DISEASE
     Route: 048
     Dates: start: 20130402
  5. TAVEGYL [Concomitant]
     Indication: PREMEDICATION
     Route: 042
     Dates: start: 20130402, end: 20130402

REACTIONS (7)
  - Chills [Recovered/Resolved]
  - Cyanosis [Recovered/Resolved]
  - Tachycardia [Recovered/Resolved]
  - Hypertension [Recovered/Resolved]
  - Eye movement disorder [Recovered/Resolved]
  - Hypopnoea [Unknown]
  - Respiratory rate increased [None]
